FAERS Safety Report 5338871-7 (Version None)
Quarter: 2007Q2

REPORT INFORMATION
  Report Type: 
  Country: None (occurrence: None)
  Receive Date: 20070322
  Receipt Date: 20060911
  Transmission Date: 20071010
  Serious: Yes (Other)
  Sender: FDA-Public Use
  Company Number: 200613178BCC

PATIENT
  Age: 68 Year
  Sex: Female
  Weight: 60.782 kg

DRUGS (1)
  1. ALEVE [Suspect]
     Indication: EXOSTOSIS
     Dosage: 220 MG, BID, ORAL
     Route: 048
     Dates: start: 20060626

REACTIONS (2)
  - HAEMATOCHEZIA [None]
  - RECTAL HAEMORRHAGE [None]
